FAERS Safety Report 9677592 (Version 1)
Quarter: 2013Q4

REPORT INFORMATION
  Report Type: Spontaneous
  Country: US (occurrence: None)
  Receive Date: 20131107
  Receipt Date: 20131107
  Transmission Date: 20140711
  Serious: Yes (Other)
  Sender: FDA-Public Use
  Company Number: None

PATIENT
  Age: 79 Year
  Sex: Male
  Weight: 68.04 kg

DRUGS (1)
  1. FENTANYL [Suspect]
     Indication: PAIN MANAGEMENT
     Dosage: UNKNOWN OUTSIDE FACILITY
     Dates: start: 20131006, end: 20131014

REACTIONS (3)
  - Circumstance or information capable of leading to device use error [None]
  - Product label issue [None]
  - Device misuse [None]
